FAERS Safety Report 11499700 (Version 4)
Quarter: 2016Q2

REPORT INFORMATION
  Report Type: Report from Study
  Country: BR (occurrence: BR)
  Receive Date: 20150914
  Receipt Date: 20160509
  Transmission Date: 20160815
  Serious: Yes (Hospitalization, Other)
  Sender: FDA-Public Use
  Company Number: BR-BRISTOL-MYERS SQUIBB COMPANY-BMS-2015-059226

PATIENT
  Age: 53 Year
  Sex: Male

DRUGS (2)
  1. DASATINIB [Suspect]
     Active Substance: DASATINIB
     Indication: ACUTE LYMPHOCYTIC LEUKAEMIA
     Dosage: 100 MG, QD
     Route: 048
     Dates: start: 201412
  2. DASATINIB [Suspect]
     Active Substance: DASATINIB
     Dosage: 10 MG, BID
     Route: 048
     Dates: start: 20150901

REACTIONS (6)
  - Leukaemia recurrent [Unknown]
  - Malaise [Unknown]
  - Cytomegalovirus infection [Unknown]
  - Immunodeficiency [Unknown]
  - Blood count abnormal [Unknown]
  - Bone marrow transplant [Unknown]

NARRATIVE: CASE EVENT DATE: 20150630
